FAERS Safety Report 23195661 (Version 1)
Quarter: 2023Q4

REPORT INFORMATION
  Report Type: Spontaneous
  Country: DE (occurrence: DE)
  Receive Date: 20231117
  Receipt Date: 20231117
  Transmission Date: 20240110
  Serious: Yes (Hospitalization)
  Sender: FDA-Public Use
  Company Number: DE-ABBVIE-5493802

PATIENT
  Age: 29 Year
  Sex: Female

DRUGS (2)
  1. SKYRIZI [Suspect]
     Active Substance: RISANKIZUMAB-RZAA
     Indication: Gastrointestinal stenosis
     Dosage: TIME INTERVAL: TOTAL: WEEK-0
     Route: 058
     Dates: start: 202309, end: 202309
  2. SKYRIZI [Suspect]
     Active Substance: RISANKIZUMAB-RZAA
     Dosage: TIME INTERVAL: TOTAL: START DATE - 2023?WEEK- 4
     Route: 058

REACTIONS (2)
  - Subileus [Unknown]
  - Gastrointestinal stenosis [Unknown]

NARRATIVE: CASE EVENT DATE: 20231001
